FAERS Safety Report 8170297 (Version 12)
Quarter: 2014Q1

REPORT INFORMATION
  Report Type: Spontaneous
  Country: GB (occurrence: None)
  Receive Date: 20110916
  Receipt Date: 20140212
  Transmission Date: 20141002
  Serious: Yes (Hospitalization, Other)
  Sender: FDA-Public Use
  Company Number: AEGBR201100240

PATIENT
  Age: 34 Year
  Sex: Female
  Weight: 99.8 kg

DRUGS (9)
  1. HUMAN IMMUNOGLOBULIN G [Suspect]
     Indication: IMMUNE THROMBOCYTOPENIC PURPURA
     Dosage: 1000 MG/KG;QD;IV
     Route: 042
     Dates: start: 20100922, end: 20100923
  2. LANSOPRAZOLE (LANSOPRAZOLE) [Suspect]
     Indication: GASTROOESOPHAGEAL REFLUX DISEASE
     Dosage: 30 MG;QD;PO
     Route: 048
     Dates: start: 20100907, end: 20100928
  3. RITUXIMAB [Suspect]
     Indication: HAEMATOLOGY TEST ABNORMAL
     Dosage: 375 MG/M**2;BIW;IV
     Route: 042
     Dates: start: 20100917, end: 20100924
  4. NPLATE [Suspect]
     Indication: IMMUNE THROMBOCYTOPENIC PURPURA
     Dosage: 1 UG/KG;SC
     Route: 058
     Dates: start: 20100920, end: 20100920
  5. TRANEXAMIC ACID [Suspect]
     Indication: PRODUCT USED FOR UNKNOWN INDICATION
     Dosage: QID;PO
     Route: 048
     Dates: start: 20100922, end: 20100928
  6. DEXAMETHASONE (DEXAMETHASONE) [Suspect]
     Indication: ANTIEMETIC SUPPORTIVE CARE
     Dosage: PO
     Route: 048
     Dates: start: 20100907, end: 20100910
  7. NORETHISTERONE (NORETHISTERONE) [Suspect]
     Indication: PRODUCT USED FOR UNKNOWN INDICATION
     Dosage: PO
     Route: 048
     Dates: start: 20100922, end: 20100928
  8. VINCRISTINE SULFATE [Concomitant]
  9. ANTI-D IMMUNOGLOBULIN [Concomitant]

REACTIONS (16)
  - Rash maculo-papular [None]
  - Rash erythematous [None]
  - Purpura [None]
  - Vaginal haemorrhage [None]
  - Rectal haemorrhage [None]
  - Melaena [None]
  - Red blood cell count decreased [None]
  - Haemoglobin decreased [None]
  - Haematocrit decreased [None]
  - Arthralgia [None]
  - Blood blister [None]
  - Rash generalised [None]
  - Neutrophil count increased [None]
  - Immune thrombocytopenic purpura [None]
  - No therapeutic response [None]
  - Haemorrhage [None]
